FAERS Safety Report 5796996-6 (Version None)
Quarter: 2008Q3

REPORT INFORMATION
  Report Type: 
  Country: None (occurrence: None)
  Receive Date: 20080701
  Receipt Date: 20080620
  Transmission Date: 20090109
  Serious: Yes (Other)
  Sender: FDA-Public Use
  Company Number: CA-ROCHE-366788

PATIENT
  Age: 91 Year
  Sex: Female

DRUGS (15)
  1. TAMIFLU [Suspect]
     Indication: DRUG USE FOR UNKNOWN INDICATION
     Route: 048
  2. BIAXIN [Suspect]
     Indication: DRUG USE FOR UNKNOWN INDICATION
     Route: 048
  3. CAPTOPRIL [Concomitant]
  4. CIPRO [Concomitant]
     Route: 042
  5. COUMADIN [Concomitant]
  6. DIDRONEL [Concomitant]
     Route: 048
  7. DOCUSATE [Concomitant]
     Route: 048
  8. FERROUS GLUCONATE [Concomitant]
     Route: 048
  9. FLAGYL [Concomitant]
     Route: 042
  10. GRAVOL TAB [Concomitant]
     Route: 042
  11. LASIX [Concomitant]
     Route: 048
  12. MORPHINE [Concomitant]
     Route: 058
  13. NITROLINGUAL [Concomitant]
     Route: 060
  14. PANTOPRAZOLE SODIUM [Concomitant]
  15. SERAX [Concomitant]

REACTIONS (5)
  - CONSTIPATION [None]
  - HAEMATOMA [None]
  - INTESTINAL OBSTRUCTION [None]
  - PAIN [None]
  - PROTHROMBIN TIME PROLONGED [None]
